FAERS Safety Report 5315029-9 (Version None)
Quarter: 2007Q2

REPORT INFORMATION
  Report Type: 
  Country: None (occurrence: None)
  Receive Date: 20070502
  Receipt Date: 20070423
  Transmission Date: 20071010
  Serious: Yes (Hospitalization)
  Sender: FDA-Public Use
  Company Number: 2007UW07920

PATIENT
  Age: 50 Year
  Sex: Male

DRUGS (1)
  1. CRESTOR [Suspect]
     Route: 048

REACTIONS (4)
  - HEPATIC CIRRHOSIS [None]
  - HEPATITIS [None]
  - JAUNDICE [None]
  - RENAL DISORDER [None]
